FAERS Safety Report 5794134-7 (Version None)
Quarter: 2008Q2

REPORT INFORMATION
  Report Type: 
  Country: None (occurrence: None)
  Receive Date: 20080625
  Receipt Date: 20080616
  Transmission Date: 20081010
  Serious: Yes (Other)
  Sender: FDA-Public Use
  Company Number: 2008S1003819

PATIENT
  Age: 19 Year
  Sex: Female

DRUGS (2)
  1. ISOTRETINOIN [Suspect]
     Indication: ACNE
     Dosage: 40 MG; TWICE A DAY; ORAL; 40 MG; DAILY; ORAL
     Route: 048
     Dates: start: 20071001, end: 20071101
  2. ISOTRETINOIN [Suspect]
     Indication: ACNE
     Dosage: 40 MG; TWICE A DAY; ORAL; 40 MG; DAILY; ORAL
     Route: 048
     Dates: start: 20071101, end: 20071101

REACTIONS (1)
  - DRUG EXPOSURE DURING PREGNANCY [None]
